FAERS Safety Report 19504313 (Version 1)
Quarter: 2021Q3

REPORT INFORMATION
  Report Type: Report from Study
  Country: US (occurrence: US)
  Receive Date: 20210708
  Receipt Date: 20210708
  Transmission Date: 20211014
  Serious: Yes (Death)
  Sender: FDA-Public Use
  Company Number: US-TAIHO ONCOLOGY  INC-EU-2020-04015

PATIENT
  Age: 71 Year
  Sex: Male
  Weight: 88.53 kg

DRUGS (14)
  1. ELIQUIS [Concomitant]
     Active Substance: APIXABAN
  2. FOLIC ACID. [Concomitant]
     Active Substance: FOLIC ACID
  3. VITAMIN C [Concomitant]
     Active Substance: ASCORBIC ACID
  4. LONSURF [Suspect]
     Active Substance: TIPIRACIL HYDROCHLORIDE\TRIFLURIDINE
     Indication: GASTRIC CANCER
     Dosage: CYCLE 6
     Route: 048
     Dates: start: 20200827, end: 20201112
  5. CALCIUM+ D3 [Concomitant]
  6. SOTALOL. [Concomitant]
     Active Substance: SOTALOL
  7. NITROSTAT [Concomitant]
     Active Substance: NITROGLYCERIN
  8. ONDANSETRON [Concomitant]
     Active Substance: ONDANSETRON
  9. ASPIRIN. [Concomitant]
     Active Substance: ASPIRIN
  10. ISOSORBIDE MONONITRATE ER [Concomitant]
     Active Substance: ISOSORBIDE MONONITRATE
  11. URO?MAG [Concomitant]
  12. DILTIAZEM CD [Concomitant]
     Active Substance: DILTIAZEM
  13. PRILOSEC OTC [Concomitant]
     Active Substance: OMEPRAZOLE MAGNESIUM
  14. POLY?IRON [Concomitant]
     Active Substance: IRON

REACTIONS (2)
  - Death [Fatal]
  - Disease progression [Unknown]

NARRATIVE: CASE EVENT DATE: 20201112
